FAERS Safety Report 9359595 (Version 1)
Quarter: 2013Q2

REPORT INFORMATION
  Report Type: Spontaneous
  Country: IT (occurrence: IT)
  Receive Date: 20130620
  Receipt Date: 20130620
  Transmission Date: 20140414
  Serious: Yes (Other)
  Sender: FDA-Public Use
  Company Number: IT-ABBOTT-13P-083-1105943-00

PATIENT
  Age: 23 Year
  Sex: Female

DRUGS (1)
  1. PROGESTERONE [Suspect]
     Indication: PROPHYLAXIS OF ABORTION
     Route: 067

REACTIONS (2)
  - Abortion spontaneous [Unknown]
  - Angioedema [Unknown]
